FAERS Safety Report 24890133 (Version 1)
Quarter: 2025Q1

REPORT INFORMATION
  Report Type: Spontaneous
  Country: JP (occurrence: JP)
  Receive Date: 20250127
  Receipt Date: 20250127
  Transmission Date: 20250409
  Serious: Yes (Other)
  Sender: EISAI
  Company Number: JP-Eisai-202411663_LEN-HCC_P_1

PATIENT
  Age: 76 Year
  Sex: Male

DRUGS (2)
  1. LENVIMA [Suspect]
     Active Substance: LENVATINIB
     Indication: Hepatocellular carcinoma
     Dosage: AFTER BREAKFAST
     Route: 048
     Dates: start: 20190401, end: 20190508
  2. LENVIMA [Suspect]
     Active Substance: LENVATINIB
     Dosage: AFTER BREAKFAST
     Route: 048
     Dates: start: 20190509, end: 20200513

REACTIONS (2)
  - Primary hypothyroidism [Not Recovered/Not Resolved]
  - Hyperthyroidism [Unknown]

NARRATIVE: CASE EVENT DATE: 20190401
